FAERS Safety Report 15044255 (Version 2)
Quarter: 2018Q3

REPORT INFORMATION
  Report Type: Spontaneous
  Country: US (occurrence: US)
  Receive Date: 20180621
  Receipt Date: 20180827
  Transmission Date: 20181010
  Serious: Yes (Death, Other)
  Sender: FDA-Public Use
  Company Number: US-PFIZER INC-2018252605

PATIENT
  Age: 68 Year
  Sex: Female

DRUGS (1)
  1. VFEND [Suspect]
     Active Substance: VORICONAZOLE
     Dosage: UNK

REACTIONS (8)
  - Acute myeloid leukaemia [Unknown]
  - Fall [Fatal]
  - Head injury [Fatal]
  - Pyrexia [Unknown]
  - Drug ineffective [Unknown]
  - Neoplasm malignant [Unknown]
  - Epistaxis [Unknown]
  - Haemorrhage subcutaneous [Unknown]
